FAERS Safety Report 4840316-8 (Version None)
Quarter: 2005Q4

REPORT INFORMATION
  Report Type: 
  Country: None (occurrence: None)
  Receive Date: 20051021
  Receipt Date: 20050908
  Transmission Date: 20060501
  Serious: Yes (Other)
  Sender: FDA-Public Use
  Company Number: 2005126979

PATIENT
  Sex: Male
  Weight: 142.8831 kg

DRUGS (5)
  1. SOMAVERT [Suspect]
     Indication: ACROMEGALY
     Dosage: 10 MG (10 MG, DAILY)
     Dates: start: 20040701
  2. SOMAVERT [Suspect]
     Indication: ACROMEGALY
     Dosage: 10 MG (10 MG, DAILY)
     Dates: start: 20050824
  3. DELATESTRYL (TESTOSTERONE ENANTATE) [Concomitant]
  4. SANDOSTATIN [Concomitant]
  5. PREDNISONE [Concomitant]

REACTIONS (13)
  - ASTHENIA [None]
  - BOWEL MOVEMENT IRREGULARITY [None]
  - ERYTHEMA [None]
  - EYE DISORDER [None]
  - FEELING HOT [None]
  - HUNGER [None]
  - HYPERSENSITIVITY [None]
  - INJECTION SITE DISCOMFORT [None]
  - INJECTION SITE ERYTHEMA [None]
  - INJECTION SITE HAEMORRHAGE [None]
  - MALAISE [None]
  - OEDEMA PERIPHERAL [None]
  - STOMACH DISCOMFORT [None]
